FAERS Safety Report 13411412 (Version 5)
Quarter: 2020Q1

REPORT INFORMATION
  Report Type: Spontaneous
  Country: US (occurrence: US)
  Receive Date: 20170406
  Receipt Date: 20200203
  Transmission Date: 20200409
  Serious: No
  Sender: FDA-Public Use
  Company Number: US-JNJFOC-20170304749

PATIENT
  Age: 5 Year
  Sex: Male

DRUGS (5)
  1. RISPERDAL [Suspect]
     Active Substance: RISPERIDONE
     Indication: MAJOR DEPRESSION
     Dosage: WITH VARYING DOSES OF 0.5,1  AND 2 MG
     Route: 048
     Dates: start: 20011219, end: 20070529
  2. RISPERDAL [Suspect]
     Active Substance: RISPERIDONE
     Indication: ATTENTION DEFICIT/HYPERACTIVITY DISORDER
     Dosage: WITH VARYING DOSES OF 0.5 AND 1 MG
     Route: 048
     Dates: start: 20070705, end: 20080609
  3. RISPERDAL [Suspect]
     Active Substance: RISPERIDONE
     Indication: ATTENTION DEFICIT/HYPERACTIVITY DISORDER
     Route: 048
     Dates: start: 20010211
  4. RISPERDAL [Suspect]
     Active Substance: RISPERIDONE
     Route: 048
     Dates: end: 20080302
  5. RISPERDAL [Suspect]
     Active Substance: RISPERIDONE
     Indication: MAJOR DEPRESSION

REACTIONS (7)
  - Tic [Recovered/Resolved]
  - Gynaecomastia [Unknown]
  - Abnormal weight gain [Unknown]
  - Emotional distress [Unknown]
  - Off label use [Unknown]
  - Increased appetite [Not Recovered/Not Resolved]
  - Product use in unapproved indication [Unknown]

NARRATIVE: CASE EVENT DATE: 20010211
